FAERS Safety Report 14589330 (Version 1)
Quarter: 2018Q1

REPORT INFORMATION
  Report Type: Other
  Country: DE (occurrence: FR)
  Receive Date: 20180302
  Receipt Date: 20180302
  Transmission Date: 20180509
  Serious: Yes (Other)
  Sender: FDA-Public Use
  Company Number: DE-MACLEODS PHARMACEUTICALS US LTD-MAC2018010711

PATIENT

DRUGS (4)
  1. OLMECOR [Suspect]
     Active Substance: OLMESARTAN MEDOXOMIL
     Indication: HYPERTENSION
     Dosage: 40 MG, UNK,FILM-COATED TABLETS
     Route: 048
     Dates: start: 20170801, end: 20170922
  2. OLMESARTAN 20MG [Suspect]
     Active Substance: OLMESARTAN
     Indication: HYPERTENSION
     Dosage: 20 MG, QD OCCLUSIVE DRESSING TECHNIQUE
     Route: 065
     Dates: start: 20170801, end: 20170922
  3. OLMESARTAN 1 A PHARMA [Suspect]
     Active Substance: OLMESARTAN
     Indication: HYPERTENSION
     Dosage: 40 MG, QD OCCLUSIVE DRESSING TECHNIQUE
     Route: 065
     Dates: start: 20170923, end: 20171013
  4. OLMESARTAN 1 A PHARMA [Suspect]
     Active Substance: OLMESARTAN
     Dosage: 40 MG, QD OCCLUSIVE DRESSING TECHNIQUE
     Route: 065
     Dates: start: 20170923, end: 20171013

REACTIONS (9)
  - Polyuria [Unknown]
  - Fatigue [Unknown]
  - Abnormal dreams [Unknown]
  - Sleep disorder [Unknown]
  - Tachycardia [Unknown]
  - Blood pressure abnormal [Unknown]
  - Hyperhidrosis [Unknown]
  - Head discomfort [Unknown]
  - Erythema [Unknown]
